FAERS Safety Report 6817201-5 (Version None)
Quarter: 2010Q3

REPORT INFORMATION
  Report Type: 
  Country: None (occurrence: None)
  Receive Date: 20100706
  Receipt Date: 20100628
  Transmission Date: 20110219
  Serious: Yes (Life-Threatening, Hospitalization, Other)
  Sender: FDA-Public Use
  Company Number: DE-ROCHE-703796

PATIENT
  Sex: Male
  Weight: 105 kg

DRUGS (3)
  1. RIBAVIRIN [Suspect]
     Route: 048
     Dates: start: 20090722, end: 20100405
  2. RIBAVIRIN [Suspect]
     Route: 048
     Dates: start: 20100406, end: 20100623
  3. PEGINTERFERON ALFA-2A [Suspect]
     Route: 058
     Dates: start: 20090722, end: 20100623

REACTIONS (3)
  - ANAEMIA [None]
  - DEEP VEIN THROMBOSIS [None]
  - PULMONARY EMBOLISM [None]
